FAERS Safety Report 15485634 (Version 1)
Quarter: 2018Q4

REPORT INFORMATION
  Report Type: Spontaneous
  Country: FR (occurrence: FR)
  Receive Date: 20181010
  Receipt Date: 20181010
  Transmission Date: 20190205
  Serious: Yes (Life-Threatening, Hospitalization)
  Sender: FDA-Public Use
  Company Number: PHHY2018FR121369

PATIENT
  Age: 60 Year
  Sex: Female
  Weight: 56 kg

DRUGS (2)
  1. COVERAM [Suspect]
     Active Substance: AMLODIPINE\PERINDOPRIL
     Indication: HYPERTENSION
     Dosage: 1 DF, UNK (1 UG/LITRE)
     Route: 048
  2. OMEPRAZOLE. [Suspect]
     Active Substance: OMEPRAZOLE
     Indication: PROPHYLAXIS
     Dosage: 1 DF, UNK (1 UG/LITRE)
     Route: 048

REACTIONS (2)
  - Tongue oedema [Recovered/Resolved]
  - Angioedema [Recovered/Resolved]

NARRATIVE: CASE EVENT DATE: 20180906
